FAERS Safety Report 8390963-4 (Version None)
Quarter: 2012Q2

REPORT INFORMATION
  Report Type: 
  Country: None (occurrence: None)
  Receive Date: 20120529
  Receipt Date: 20120524
  Transmission Date: 20120825
  Serious: Yes (Other)
  Sender: FDA-Public Use
  Company Number: PHHY2012AU044497

PATIENT
  Sex: Male

DRUGS (3)
  1. ONBREZ [Suspect]
     Indication: DYSPNOEA
  2. WARFARIN SODIUM [Concomitant]
     Indication: COAGULOPATHY
  3. ONBREZ [Suspect]
     Indication: PULMONARY FUNCTION TEST DECREASED

REACTIONS (2)
  - PULMONARY EMBOLISM [None]
  - DRUG INEFFECTIVE [None]
